FAERS Safety Report 7385882-6 (Version None)
Quarter: 2011Q1

REPORT INFORMATION
  Report Type: 
  Country: None (occurrence: None)
  Receive Date: 20110331
  Receipt Date: 20110316
  Transmission Date: 20110831
  Serious: Yes (Life-Threatening, Other)
  Sender: FDA-Public Use
  Company Number: FR-JNJFOC-20110302778

PATIENT
  Sex: Female
  Weight: 27 kg

DRUGS (8)
  1. CALCIDOSE [Concomitant]
  2. FERROSTRANE [Concomitant]
  3. HYDROCORTISONE [Concomitant]
  4. PURINETHOL [Concomitant]
     Indication: CROHN'S DISEASE
  5. REMICADE [Suspect]
     Route: 042
  6. HYDROCORTISONE HEMISUCCINATE [Concomitant]
     Indication: PREMEDICATION
  7. REMICADE [Suspect]
     Indication: CROHN'S DISEASE
     Route: 042
  8. POLARAMINE [Concomitant]
     Indication: PREMEDICATION

REACTIONS (6)
  - INFUSION RELATED REACTION [None]
  - HEADACHE [None]
  - DRUG HYPERSENSITIVITY [None]
  - CHEST DISCOMFORT [None]
  - DYSPNOEA [None]
  - ANAPHYLACTIC SHOCK [None]
